FAERS Safety Report 7807310-6 (Version None)
Quarter: 2011Q4

REPORT INFORMATION
  Report Type: 
  Country: None (occurrence: None)
  Receive Date: 20111011
  Receipt Date: 20111003
  Transmission Date: 20120403
  Serious: No
  Sender: FDA-Public Use
  Company Number: US-BAYER-2011-029362

PATIENT
  Age: 19 Year
  Sex: Female

DRUGS (1)
  1. MIRENA [Suspect]
     Indication: CONTRACEPTION
     Dosage: 20 MCG/24HR, CONT
     Route: 015
     Dates: start: 20110328

REACTIONS (4)
  - VAGINAL HAEMORRHAGE [None]
  - MEDICAL DEVICE COMPLICATION [None]
  - COITAL BLEEDING [None]
  - METRORRHAGIA [None]
